FAERS Safety Report 20648238 (Version 1)
Quarter: 2022Q1

REPORT INFORMATION
  Report Type: Spontaneous
  Country: US (occurrence: None)
  Receive Date: 20220328
  Receipt Date: 20220328
  Transmission Date: 20220424
  Serious: No
  Sender: FDA-Public Use
  Company Number: None

PATIENT
  Age: 50 Year
  Sex: Female
  Weight: 100.35 kg

DRUGS (1)
  1. SILVER SULFADIAZINE [Suspect]
     Active Substance: SILVER SULFADIAZINE
     Indication: Skin ulcer
     Dosage: OTHER QUANTITY : 3 THIN LAYER;?OTHER FREQUENCY : A WEEK;?
     Route: 061
     Dates: start: 20220317, end: 20220327

REACTIONS (5)
  - Skin burning sensation [None]
  - Pain in extremity [None]
  - Muscle tightness [None]
  - Pain [None]
  - Adverse drug reaction [None]

NARRATIVE: CASE EVENT DATE: 20220318
